FAERS Safety Report 7077404-4 (Version None)
Quarter: 2010Q4

REPORT INFORMATION
  Report Type: 
  Country: None (occurrence: None)
  Receive Date: 20101101
  Receipt Date: 20101026
  Transmission Date: 20110411
  Serious: Yes (Other)
  Sender: FDA-Public Use
  Company Number: JP-B.I. PHARMACEUTICALS,INC./RIDGEFIELD-2010-BP-12005NB

PATIENT

DRUGS (1)
  1. MICARDIS [Suspect]

REACTIONS (1)
  - INTERSTITIAL LUNG DISEASE [None]
